FAERS Safety Report 11770536 (Version 2)
Quarter: 2015Q4

REPORT INFORMATION
  Report Type: Spontaneous
  Country: US (occurrence: US)
  Receive Date: 20151123
  Receipt Date: 20151123
  Transmission Date: 20160304
  Serious: No
  Sender: FDA-Public Use
  Company Number: US-PERRIGO-15US009788

PATIENT
  Age: 70 Year
  Sex: Male
  Weight: 78.46 kg

DRUGS (10)
  1. CYCLOBENZAPRINE [Concomitant]
     Active Substance: CYCLOBENZAPRINE
     Indication: MUSCLE SPASMS
     Dosage: 20 MG, QHS
     Route: 065
     Dates: end: 20150910
  2. DICLOFENAC [Concomitant]
     Active Substance: DICLOFENAC
     Indication: ARTHRITIS
     Dosage: 75 MG, BID
     Route: 065
     Dates: end: 20150910
  3. ALBUTEROL                          /00139501/ [Concomitant]
     Active Substance: ALBUTEROL
     Indication: CHRONIC OBSTRUCTIVE PULMONARY DISEASE
     Dosage: UNK
     Route: 065
  4. PENTOXIFYLLINE. [Concomitant]
     Active Substance: PENTOXIFYLLINE
     Indication: ANGIOPATHY
     Dosage: 400 MG, TID
     Route: 048
     Dates: end: 20150910
  5. METOPROLOL [Concomitant]
     Active Substance: METOPROLOL
     Indication: HEART RATE IRREGULAR
     Dosage: 25 MG, BID
     Route: 065
     Dates: end: 20150910
  6. GABAPENTIN. [Concomitant]
     Active Substance: GABAPENTIN
     Indication: NEURALGIA
     Dosage: 400 MG, TID
     Route: 065
     Dates: end: 20150910
  7. DOCUSATE SODIUM. [Concomitant]
     Active Substance: DOCUSATE SODIUM
     Indication: CONSTIPATION
     Dosage: UNK
     Route: 065
     Dates: start: 201508, end: 20150910
  8. COMBIVENT [Concomitant]
     Active Substance: ALBUTEROL SULFATE\IPRATROPIUM BROMIDE
     Indication: CHRONIC OBSTRUCTIVE PULMONARY DISEASE
     Dosage: UNK, PRN
     Route: 055
     Dates: end: 20150910
  9. POLYETHYLENE GLYCOL 3350. [Suspect]
     Active Substance: POLYETHYLENE GLYCOL 3350
     Indication: CONSTIPATION
     Dosage: 17 G, QD
     Route: 048
     Dates: start: 201508, end: 20150910
  10. FIBER THERAPY [Concomitant]
     Active Substance: METHYLCELLULOSE (4000 MPA.S)
     Indication: CONSTIPATION
     Dosage: UNK
     Route: 065
     Dates: start: 201508, end: 20150910

REACTIONS (3)
  - Incorrect drug administration duration [Recovered/Resolved]
  - Rash papular [Recovering/Resolving]
  - Pruritus [Recovering/Resolving]

NARRATIVE: CASE EVENT DATE: 201508
